FAERS Safety Report 9297911 (Version 1)
Quarter: 2013Q2

REPORT INFORMATION
  Report Type: Spontaneous
  Country: US (occurrence: US)
  Receive Date: 20130520
  Receipt Date: 20130520
  Transmission Date: 20140414
  Serious: Yes (Other)
  Sender: FDA-Public Use
  Company Number: US-JNJFOC-20120507542

PATIENT
  Sex: Female
  Weight: 77.57 kg

DRUGS (3)
  1. STELARA [Suspect]
     Indication: PSORIASIS
     Route: 058
     Dates: start: 201110, end: 20121217
  2. CYMBALTA [Concomitant]
  3. GABAPENTIN [Concomitant]

REACTIONS (3)
  - Surgery [Unknown]
  - Psoriasis [Recovering/Resolving]
  - Drug ineffective [Unknown]
